FAERS Safety Report 8534596-5 (Version None)
Quarter: 2012Q3

REPORT INFORMATION
  Report Type: 
  Country: None (occurrence: None)
  Receive Date: 20120724
  Receipt Date: 20120711
  Transmission Date: 20120928
  Serious: No
  Sender: FDA-Public Use
  Company Number: PHHY2012PT059882

PATIENT
  Age: 30 Year
  Sex: Female

DRUGS (3)
  1. AZITHROMYCIN [Suspect]
     Indication: TONSILLITIS
     Dosage: 500 MG, DAILY
     Route: 048
     Dates: start: 20111123
  2. FOLIC ACID [Concomitant]
     Route: 048
     Dates: start: 20111114
  3. AMOXICILLIN AND CLAVULANATE POTASSIUM [Suspect]
     Indication: ASTHMA
     Dates: start: 20120401

REACTIONS (1)
  - MATERNAL EXPOSURE DURING PREGNANCY [None]
